FAERS Safety Report 14013687 (Version 4)
Quarter: 2018Q4

REPORT INFORMATION
  Report Type: Report from Study
  Country: US (occurrence: US)
  Receive Date: 20170926
  Receipt Date: 20181006
  Transmission Date: 20190204
  Serious: No
  Sender: FDA-Public Use
  Company Number: PHEH2017US030566

PATIENT
  Sex: Female

DRUGS (1)
  1. AFINITOR [Suspect]
     Active Substance: EVEROLIMUS
     Indication: ANGIOMYOLIPOMA
     Dosage: 10 MG, QD
     Route: 048
     Dates: start: 20160831

REACTIONS (5)
  - Menstrual disorder [Unknown]
  - Fungal skin infection [Unknown]
  - Bacterial infection [Unknown]
  - Skin disorder [Unknown]
  - Acne [Unknown]
